FAERS Safety Report 9157813 (Version 4)
Quarter: 2013Q2

REPORT INFORMATION
  Report Type: Spontaneous
  Country: US (occurrence: US)
  Receive Date: 20130312
  Receipt Date: 20130514
  Transmission Date: 20140414
  Serious: No
  Sender: FDA-Public Use
  Company Number: US-009507513-1303USA005243

PATIENT
  Sex: Female
  Weight: 58.96 kg

DRUGS (2)
  1. IMPLANON [Suspect]
     Indication: CONTRACEPTION
     Dosage: UNK
     Route: 059
     Dates: start: 20111209, end: 20130404
  2. IMPLANON [Suspect]
     Dosage: UNK
     Route: 059
     Dates: start: 20130412

REACTIONS (3)
  - Dysgeusia [Unknown]
  - Device kink [Recovered/Resolved]
  - Product quality issue [Unknown]
